FAERS Safety Report 14391486 (Version 1)
Quarter: 2018Q1

REPORT INFORMATION
  Report Type: Spontaneous
  Country: FR (occurrence: FR)
  Receive Date: 20180116
  Receipt Date: 20180116
  Transmission Date: 20180509
  Serious: Yes (Other)
  Sender: FDA-Public Use
  Company Number: FR-ASTRAZENECA-2015SF18612

PATIENT
  Age: 1073 Month
  Sex: Female

DRUGS (1)
  1. IRESSA [Suspect]
     Active Substance: GEFITINIB
     Indication: NON-SMALL CELL LUNG CANCER
     Route: 048
     Dates: start: 20140226, end: 20140526

REACTIONS (3)
  - Malignant neoplasm progression [Unknown]
  - Hepatotoxicity [Unknown]
  - Therapy cessation [Unknown]

NARRATIVE: CASE EVENT DATE: 201404
